FAERS Safety Report 25675353 (Version 1)
Quarter: 2025Q3

REPORT INFORMATION
  Report Type: Spontaneous
  Country: AU (occurrence: AU)
  Receive Date: 20250813
  Receipt Date: 20250813
  Transmission Date: 20251021
  Serious: Yes (Other)
  Sender: MYLAN
  Company Number: AU-MYLANLABS-2025M1068001

PATIENT
  Sex: Male

DRUGS (16)
  1. OXALIPLATIN [Suspect]
     Active Substance: OXALIPLATIN
     Indication: Maternal-foetal therapy
  2. OXALIPLATIN [Suspect]
     Active Substance: OXALIPLATIN
  3. OXALIPLATIN [Suspect]
     Active Substance: OXALIPLATIN
     Route: 064
  4. OXALIPLATIN [Suspect]
     Active Substance: OXALIPLATIN
     Route: 064
  5. OXALIPLATIN [Suspect]
     Active Substance: OXALIPLATIN
  6. OXALIPLATIN [Suspect]
     Active Substance: OXALIPLATIN
  7. OXALIPLATIN [Suspect]
     Active Substance: OXALIPLATIN
     Route: 064
  8. OXALIPLATIN [Suspect]
     Active Substance: OXALIPLATIN
     Route: 064
  9. FLUOROURACIL [Suspect]
     Active Substance: FLUOROURACIL
     Indication: Maternal-foetal therapy
  10. FLUOROURACIL [Suspect]
     Active Substance: FLUOROURACIL
  11. FLUOROURACIL [Suspect]
     Active Substance: FLUOROURACIL
     Route: 064
  12. FLUOROURACIL [Suspect]
     Active Substance: FLUOROURACIL
     Route: 064
  13. FLUOROURACIL [Suspect]
     Active Substance: FLUOROURACIL
  14. FLUOROURACIL [Suspect]
     Active Substance: FLUOROURACIL
  15. FLUOROURACIL [Suspect]
     Active Substance: FLUOROURACIL
     Route: 064
  16. FLUOROURACIL [Suspect]
     Active Substance: FLUOROURACIL
     Route: 064

REACTIONS (2)
  - Foetal growth restriction [Unknown]
  - Foetal exposure during pregnancy [Recovered/Resolved]

NARRATIVE: CASE EVENT DATE: 20220101
